FAERS Safety Report 5126497-X (Version None)
Quarter: 2006Q4

REPORT INFORMATION
  Report Type: 
  Country: None (occurrence: None)
  Receive Date: 20061010
  Receipt Date: 20060921
  Transmission Date: 20070319
  Serious: No
  Sender: FDA-Public Use
  Company Number: US-2006-016292

PATIENT
  Age: 39 Year
  Sex: Female
  Weight: 77.1 kg

DRUGS (4)
  1. BETASERON [Suspect]
     Indication: RELAPSING-REMITTING MULTIPLE SCLEROSIS
     Dosage: 8 MIU, EVERY 2D, SUBCUTANEOUS
     Route: 058
     Dates: start: 20050901
  2. SOLU-MEDROL [Suspect]
     Indication: MULTIPLE SCLEROSIS
     Dosage: 1 G, 1X/DAY, INTRAVENOUS
     Route: 042
     Dates: start: 20060605, end: 20060610
  3. PREDNISONE TAB [Suspect]
     Indication: MULTIPLE SCLEROSIS
     Dosage: 10 MG, 1X/DAY, ORAL
     Route: 048
     Dates: start: 20060611, end: 20060613
  4. TOPAMAX [Concomitant]

REACTIONS (15)
  - BLOOD POTASSIUM DECREASED [None]
  - CARDIAC MURMUR [None]
  - CHEST PAIN [None]
  - CONDITION AGGRAVATED [None]
  - DIZZINESS [None]
  - DRUG HYPERSENSITIVITY [None]
  - FLUSHING [None]
  - HEADACHE [None]
  - HYPERTENSION [None]
  - MULTIPLE SCLEROSIS [None]
  - NAUSEA [None]
  - NOCTURIA [None]
  - OEDEMA PERIPHERAL [None]
  - SINUS TACHYCARDIA [None]
  - VISUAL DISTURBANCE [None]
